FAERS Safety Report 7396019-1 (Version None)
Quarter: 2011Q2

REPORT INFORMATION
  Report Type: 
  Country: None (occurrence: None)
  Receive Date: 20110406
  Receipt Date: 20110328
  Transmission Date: 20111010
  Serious: Yes (Hospitalization, Other)
  Sender: FDA-Public Use
  Company Number: US-ELI_LILLY_AND_COMPANY-US201103009035

PATIENT
  Sex: Male

DRUGS (7)
  1. HUMULIN 70/30 [Suspect]
     Dosage: 30 U, OTHER
     Dates: start: 20100601
  2. HUMULIN 70/30 [Suspect]
     Indication: TYPE 1 DIABETES MELLITUS
     Dosage: 25 U, EACH MORNING
     Dates: start: 20100601
  3. HUMULIN 70/30 [Suspect]
     Dosage: 35 U, EACH EVENING
     Dates: start: 20100601
  4. ANTIHYPERTENSIVES [Concomitant]
     Dosage: UNK
  5. HUMULIN N [Suspect]
     Indication: TYPE 1 DIABETES MELLITUS
     Dosage: 30 U, EACH EVENING
     Dates: start: 19860101, end: 20100601
  6. HUMULIN R [Suspect]
     Indication: TYPE 1 DIABETES MELLITUS
     Dosage: 45 U, EACH MORNING
     Dates: start: 19860101, end: 20100601
  7. HUMULIN 70/30 [Suspect]
     Dosage: UNK

REACTIONS (6)
  - MOBILITY DECREASED [None]
  - CEREBROVASCULAR ACCIDENT [None]
  - SPEECH DISORDER [None]
  - DRUG INEFFECTIVE [None]
  - INTRACARDIAC THROMBUS [None]
  - BLOOD GLUCOSE FLUCTUATION [None]
